FAERS Safety Report 10182642 (Version 1)
Quarter: 2014Q2

REPORT INFORMATION
  Report Type: Spontaneous
  Country: US (occurrence: None)
  Receive Date: 20140519
  Receipt Date: 20140519
  Transmission Date: 20141212
  Serious: No
  Sender: FDA-Public Use
  Company Number: None

PATIENT
  Age: 29 Year
  Sex: Female
  Weight: 81.65 kg

DRUGS (1)
  1. VIIBRYD [Suspect]
     Indication: MAJOR DEPRESSION
     Dates: start: 20130520, end: 20140515

REACTIONS (19)
  - Drug withdrawal syndrome [None]
  - Dizziness [None]
  - Tremor [None]
  - Cold sweat [None]
  - Hot flush [None]
  - Diarrhoea [None]
  - Visual impairment [None]
  - Paraesthesia [None]
  - Rash pruritic [None]
  - Formication [None]
  - Aggression [None]
  - Agitation [None]
  - Dry eye [None]
  - Confusional state [None]
  - Vision blurred [None]
  - Pruritus [None]
  - Muscle spasms [None]
  - Nausea [None]
  - Depression [None]
